FAERS Safety Report 4688847-8 (Version None)
Quarter: 2005Q2

REPORT INFORMATION
  Report Type: 
  Country: None (occurrence: None)
  Receive Date: 20050613
  Receipt Date: 20050531
  Transmission Date: 20051028
  Serious: Yes (Hospitalization)
  Sender: FDA-Public Use
  Company Number: FR-GLAXOSMITHKLINE-B0383535A

PATIENT
  Age: 51 Year
  Sex: Female

DRUGS (3)
  1. ONDANSETRON [Suspect]
     Indication: MENINGITIS
     Dosage: 1AMP SINGLE DOSE
     Route: 042
     Dates: start: 20041213, end: 20041213
  2. PERFALGAN [Suspect]
     Indication: MENINGITIS
     Dosage: 1G SINGLE DOSE
     Route: 042
     Dates: start: 20041213, end: 20041213
  3. PROFENID [Concomitant]
     Indication: MENINGITIS
     Dosage: 200MG SINGLE DOSE
     Route: 042
     Dates: start: 20041213, end: 20041213

REACTIONS (3)
  - APHONIA [None]
  - DYSPNOEA [None]
  - FACE OEDEMA [None]
